FAERS Safety Report 6540797-8 (Version None)
Quarter: 2010Q1

REPORT INFORMATION
  Report Type: 
  Country: None (occurrence: None)
  Receive Date: 20100118
  Receipt Date: 20100107
  Transmission Date: 20100710
  Serious: No
  Sender: FDA-Public Use
  Company Number: US-JNJFOC-20100103642

PATIENT
  Sex: Female

DRUGS (13)
  1. SANDOZ FENTANYL TRANSDERMAL SYSTEM [Suspect]
     Indication: BACK PAIN
     Route: 062
  2. PRILOSEC [Concomitant]
     Indication: GASTROOESOPHAGEAL REFLUX DISEASE
     Route: 048
  3. PROPRANOLOL [Concomitant]
     Indication: HYPERTENSION
     Route: 048
  4. HYDROCODONE [Concomitant]
     Indication: BREAKTHROUGH PAIN
     Route: 048
  5. LEVOTHYROXINE SODIUM [Concomitant]
     Indication: HYPOTHYROIDISM
     Route: 048
  6. LEXAPRO [Concomitant]
     Indication: DEPRESSION
     Route: 048
  7. NIASPAN [Concomitant]
     Indication: BLOOD CHOLESTEROL DECREASED
     Route: 048
  8. SIMVASTATIN [Concomitant]
     Indication: BLOOD CHOLESTEROL INCREASED
     Route: 048
  9. TOPIRAMATE [Concomitant]
     Indication: TREMOR
     Route: 048
  10. LORAZEPAM [Concomitant]
     Indication: ANXIETY
     Route: 048
  11. TEMAZEPAM [Concomitant]
     Indication: SLEEP DISORDER
     Route: 048
  12. VAGIFEM [Concomitant]
     Indication: ATROPHIC VULVOVAGINITIS
     Route: 067
  13. ENABLEX [Concomitant]
     Indication: URINARY INCONTINENCE
     Route: 048

REACTIONS (2)
  - DIZZINESS [None]
  - DRUG ADMINISTERED AT INAPPROPRIATE SITE [None]
